FAERS Safety Report 24220163 (Version 1)
Quarter: 2024Q3

REPORT INFORMATION
  Report Type: Spontaneous
  Country: US (occurrence: US)
  Receive Date: 20240817
  Receipt Date: 20240817
  Transmission Date: 20241016
  Serious: Yes (Hospitalization, Other)
  Sender: BAXTER
  Company Number: US-BAXTER-2024BAX022905

PATIENT
  Age: 51 Year
  Sex: Female
  Weight: 50.6 kg

DRUGS (10)
  1. DOXIL [Suspect]
     Active Substance: DOXORUBICIN HYDROCHLORIDE
     Indication: Breast cancer metastatic
     Dosage: UNKNOWN DOSAGE, FIRST/ONLY INFUSION INTERRUPTED
     Route: 065
     Dates: start: 20220609
  2. SGN-TGT [Suspect]
     Active Substance: SGN-TGT
     Indication: Breast cancer metastatic
     Dosage: 1 MG/KG ON DAY 1 OF EACH 21 DAY CYCLE
     Route: 042
     Dates: start: 20220418, end: 20220509
  3. SGN-TGT [Suspect]
     Active Substance: SGN-TGT
     Dosage: UNK, TREATMENT  DISCONTINUE
     Route: 042
     Dates: end: 20220526
  4. SASANLIMAB [Suspect]
     Active Substance: SASANLIMAB
     Indication: Breast cancer metastatic
     Dosage: 225 MG ON DAY 1 OF EACH CYCLE
     Route: 058
     Dates: start: 20220418, end: 20220509
  5. SASANLIMAB [Suspect]
     Active Substance: SASANLIMAB
     Dosage: UNK, TREATMENT  DISCONTINUED
     Route: 058
     Dates: end: 20220526
  6. HYDROXYZINE HYDROCHLORIDE [Concomitant]
     Active Substance: HYDROXYZINE HYDROCHLORIDE
     Dosage: UNK
  7. Fish Oil OMEGA 3s [Concomitant]
     Dosage: UNK
  8. ZOFRAN [Concomitant]
     Active Substance: ONDANSETRON HYDROCHLORIDE
     Dosage: UNK
     Route: 065
  9. Artificial tears [Concomitant]
     Route: 065
  10. CHONDROITIN SULFATE (BOVINE)\GLUCOSAMINE HYDROCHLORIDE [Concomitant]
     Active Substance: CHONDROITIN SULFATE (BOVINE)\GLUCOSAMINE HYDROCHLORIDE
     Dosage: UNK
     Route: 065

REACTIONS (4)
  - Syncope [Recovered/Resolved]
  - Oropharyngeal pain [Not Recovered/Not Resolved]
  - Cough [Not Recovered/Not Resolved]
  - Tachycardia [Not Recovered/Not Resolved]

NARRATIVE: CASE EVENT DATE: 20220609
